FAERS Safety Report 14084332 (Version 1)
Quarter: 2017Q4

REPORT INFORMATION
  Report Type: Spontaneous
  Country: US (occurrence: US)
  Receive Date: 20171013
  Receipt Date: 20171013
  Transmission Date: 20180321
  Serious: Yes (Other)
  Sender: FDA-Public Use
  Company Number: None

PATIENT
  Sex: Female
  Weight: 95.4 kg

DRUGS (9)
  1. ATENOLOL. [Concomitant]
     Active Substance: ATENOLOL
  2. VERAPAMIL [Concomitant]
     Active Substance: VERAPAMIL HYDROCHLORIDE
  3. CYCLOSPORINE. [Concomitant]
     Active Substance: CYCLOSPORINE
  4. ASPIRIN. [Concomitant]
     Active Substance: ASPIRIN
  5. REVLIMID [Concomitant]
     Active Substance: LENALIDOMIDE
  6. PROMACTA [Suspect]
     Active Substance: ELTROMBOPAG OLAMINE
     Indication: MYELODYSPLASTIC SYNDROME
     Route: 048
     Dates: start: 20170807, end: 20171013
  7. ONE-DAILY MULTI VITAMINS [Concomitant]
  8. RANITIDINE. [Concomitant]
     Active Substance: RANITIDINE
  9. FOLIC ACID. [Concomitant]
     Active Substance: FOLIC ACID

REACTIONS (1)
  - Disease progression [None]
